FAERS Safety Report 21275176 (Version 3)
Quarter: 2022Q3

REPORT INFORMATION
  Report Type: Spontaneous
  Country: US (occurrence: US)
  Receive Date: 20220831
  Receipt Date: 20220927
  Transmission Date: 20221026
  Serious: Yes (Life-Threatening, Hospitalization, Other)
  Sender: FDA-Public Use
  Company Number: US-PFIZER INC-PV202200047987

PATIENT
  Age: 3 Month
  Sex: Male
  Weight: 6.24 kg

DRUGS (23)
  1. FENTANYL CITRATE [Suspect]
     Active Substance: FENTANYL CITRATE
     Indication: Analgesic therapy
     Dosage: 25 UG (7.2 MG/KG)
     Route: 042
  2. FENTANYL CITRATE [Suspect]
     Active Substance: FENTANYL CITRATE
     Dosage: 0.5-1 MCG/KG/HR
     Route: 042
  3. FENTANYL CITRATE [Suspect]
     Active Substance: FENTANYL CITRATE
     Dosage: 30 UG/KG
     Route: 042
  4. FENTANYL CITRATE [Suspect]
     Active Substance: FENTANYL CITRATE
     Dosage: 10 UG
     Route: 042
  5. FENTANYL CITRATE [Suspect]
     Active Substance: FENTANYL CITRATE
     Dosage: 5 MCG/KG/H
     Route: 042
  6. FENTANYL CITRATE [Suspect]
     Active Substance: FENTANYL CITRATE
     Dosage: 12 UG
     Route: 042
  7. FENTANYL CITRATE [Suspect]
     Active Substance: FENTANYL CITRATE
     Dosage: 4 MCG/KG/H
     Route: 042
  8. FENTANYL CITRATE [Suspect]
     Active Substance: FENTANYL CITRATE
     Dosage: 7 MCG/KG/H
     Route: 042
  9. MORPHINE SULFATE [Suspect]
     Active Substance: MORPHINE SULFATE
     Indication: Analgesic therapy
     Dosage: 0.9 MG (IN DIVIDED DOSES)
     Route: 042
  10. ROPIVACAINE HYDROCHLORIDE [Concomitant]
     Active Substance: ROPIVACAINE HYDROCHLORIDE
     Indication: Local anaesthesia
     Dosage: UNK
     Route: 058
  11. DEXMEDETOMIDINE HYDROCHLORIDE [Concomitant]
     Active Substance: DEXMEDETOMIDINE HYDROCHLORIDE
     Indication: Light anaesthesia
     Dosage: 10 UG
     Route: 042
  12. DEXMEDETOMIDINE HYDROCHLORIDE [Concomitant]
     Active Substance: DEXMEDETOMIDINE HYDROCHLORIDE
     Dosage: 1 UG
     Route: 042
  13. DEXMEDETOMIDINE HYDROCHLORIDE [Concomitant]
     Active Substance: DEXMEDETOMIDINE HYDROCHLORIDE
     Dosage: 0.4 MCG/KG/H
     Route: 042
  14. DEXMEDETOMIDINE HYDROCHLORIDE [Concomitant]
     Active Substance: DEXMEDETOMIDINE HYDROCHLORIDE
     Dosage: 0.7 MCG/KG/H
     Route: 042
  15. DEXMEDETOMIDINE HYDROCHLORIDE [Concomitant]
     Active Substance: DEXMEDETOMIDINE HYDROCHLORIDE
     Dosage: 0.8 MCG/KG/H
     Route: 042
  16. SUGAMMADEX [Concomitant]
     Active Substance: SUGAMMADEX
     Indication: Neuromuscular blockade reversal
     Dosage: UNK
  17. ACETAMINOPHEN\HYDROCODONE [Concomitant]
     Active Substance: ACETAMINOPHEN\HYDROCODONE
     Dosage: 0.2 MG/KG
     Route: 048
  18. SEVOFLURANE [Concomitant]
     Active Substance: SEVOFLURANE
     Dosage: 0.7
  19. SEVOFLURANE [Concomitant]
     Active Substance: SEVOFLURANE
     Dosage: 1.3
  20. SEVOFLURANE [Concomitant]
     Active Substance: SEVOFLURANE
     Dosage: 1.5
  21. SEVOFLURANE [Concomitant]
     Active Substance: SEVOFLURANE
     Dosage: 1.7
  22. SEVOFLURANE [Concomitant]
     Active Substance: SEVOFLURANE
     Dosage: 2
  23. SEVOFLURANE [Concomitant]
     Active Substance: SEVOFLURANE
     Dosage: 1

REACTIONS (3)
  - Off label use [Unknown]
  - Hyperaesthesia [Recovering/Resolving]
  - Agitation postoperative [Recovering/Resolving]
